FAERS Safety Report 15186896 (Version 1)
Quarter: 2018Q3

REPORT INFORMATION
  Report Type: Report from Study
  Country: US (occurrence: US)
  Receive Date: 20180723
  Receipt Date: 20180723
  Transmission Date: 20181010
  Serious: No
  Sender: FDA-Public Use
  Company Number: US-EXELIXIS-CABO-18012902

PATIENT
  Sex: Female

DRUGS (14)
  1. ALBUTEROL. [Concomitant]
     Active Substance: ALBUTEROL
  2. AMLODIPINE [Concomitant]
     Active Substance: AMLODIPINE BESYLATE
  3. LANSOPRAZOLE. [Concomitant]
     Active Substance: LANSOPRAZOLE
  4. LEVOTHYROXINE. [Concomitant]
     Active Substance: LEVOTHYROXINE
  5. CALCIUM [Concomitant]
     Active Substance: CALCIUM
  6. RANITIDINE. [Concomitant]
     Active Substance: RANITIDINE
  7. VITAMIN B6 [Concomitant]
     Active Substance: PYRIDOXINE HYDROCHLORIDE
  8. COUMADIN [Concomitant]
     Active Substance: WARFARIN SODIUM
  9. LISINOPRIL. [Concomitant]
     Active Substance: LISINOPRIL
  10. IRON [Concomitant]
     Active Substance: IRON
  11. CABOMETYX [Suspect]
     Active Substance: CABOZANTINIB S-MALATE
     Indication: RENAL CANCER
     Dosage: 40 MG, QD
     Route: 048
     Dates: start: 20171005
  12. CABOMETYX [Suspect]
     Active Substance: CABOZANTINIB S-MALATE
     Dosage: 40 MG, QOD
     Route: 048
     Dates: end: 20180225
  13. PROBIOTIC [Concomitant]
     Active Substance: PROBIOTICS NOS
  14. PRILOSEC [Concomitant]
     Active Substance: OMEPRAZOLE MAGNESIUM

REACTIONS (1)
  - Drug intolerance [Unknown]
